FAERS Safety Report 13807525 (Version 8)
Quarter: 2018Q2

REPORT INFORMATION
  Report Type: Spontaneous
  Country: IN (occurrence: IN)
  Receive Date: 20170728
  Receipt Date: 20180418
  Transmission Date: 20180711
  Serious: Yes (Hospitalization, Other)
  Sender: FDA-Public Use
  Company Number: IN-PFIZER INC-2017286265

PATIENT
  Age: 71 Year
  Sex: Male

DRUGS (1)
  1. CHAMPIX [Suspect]
     Active Substance: VARENICLINE TARTRATE
     Indication: SMOKING CESSATION THERAPY
     Dosage: 1 MG, 2X/DAY
     Route: 048
     Dates: start: 20170609, end: 2017

REACTIONS (12)
  - Cough [Recovering/Resolving]
  - Depressed mood [Unknown]
  - Hernia [Unknown]
  - Pre-existing condition improved [Unknown]
  - Tension [Unknown]
  - Accident [Unknown]
  - Hand fracture [Recovered/Resolved]
  - Cardiac disorder [Unknown]
  - Disease recurrence [Unknown]
  - Asthma [Unknown]
  - Dyspnoea [Unknown]
  - Therapeutic response unexpected [Unknown]

NARRATIVE: CASE EVENT DATE: 2017
